FAERS Safety Report 18737690 (Version 2)
Quarter: 2021Q1

REPORT INFORMATION
  Report Type: Report from Study
  Country: US (occurrence: US)
  Receive Date: 20210113
  Receipt Date: 20210126
  Transmission Date: 20210419
  Serious: No
  Sender: FDA-Public Use
  Company Number: US-GILEAD-2021-0512427

PATIENT
  Age: 78 Year
  Sex: Male
  Weight: 92.97 kg

DRUGS (1)
  1. IDELALISIB [Suspect]
     Active Substance: IDELALISIB
     Indication: CHRONIC LYMPHOCYTIC LEUKAEMIA
     Dosage: 150 MG, BID
     Route: 048

REACTIONS (8)
  - Upper respiratory tract endoscopy [Unknown]
  - Eye irritation [Unknown]
  - Feeling abnormal [Unknown]
  - Blood uric acid increased [Unknown]
  - Arthralgia [Unknown]
  - Retching [Unknown]
  - Arthritis [Unknown]
  - Malaise [Unknown]

NARRATIVE: CASE EVENT DATE: 20201019
